FAERS Safety Report 6064539-8 (Version None)
Quarter: 2009Q1

REPORT INFORMATION
  Report Type: 
  Country: None (occurrence: None)
  Receive Date: 20090204
  Receipt Date: 20090128
  Transmission Date: 20090719
  Serious: Yes (Hospitalization)
  Sender: FDA-Public Use
  Company Number: A0766419A

PATIENT
  Age: 74 Year
  Sex: Female

DRUGS (12)
  1. TOPOTECAN [Suspect]
     Dosage: 2MG CYCLIC
     Route: 042
     Dates: start: 20080915, end: 20080919
  2. INVESTIGATIONAL DRUG [Suspect]
     Dosage: 700MG PER DAY
     Route: 048
     Dates: start: 20080916, end: 20081002
  3. METOCLOPRAMIDE [Concomitant]
  4. MACROGOL [Concomitant]
  5. SENNA [Concomitant]
  6. DOCUSATE SODIUM [Concomitant]
     Dates: start: 20080927, end: 20080929
  7. REGLAN [Concomitant]
     Indication: NAUSEA
     Dosage: 10MG FOUR TIMES PER DAY
  8. COUMADIN [Concomitant]
  9. PERCOCET [Concomitant]
     Indication: PAIN
  10. PREDNISONE [Concomitant]
     Dosage: 10MG PER DAY
     Dates: start: 20081003, end: 20081006
  11. LOVENOX [Concomitant]
     Dosage: 60MG TWICE PER DAY
     Route: 058
  12. MIRALAX [Concomitant]

REACTIONS (11)
  - BLOOD POTASSIUM DECREASED [None]
  - CONSTIPATION [None]
  - ENCEPHALITIS [None]
  - FALL [None]
  - FEBRILE NEUTROPENIA [None]
  - LOSS OF CONSCIOUSNESS [None]
  - MALAISE [None]
  - PANCYTOPENIA [None]
  - PYREXIA [None]
  - SYNCOPE [None]
  - URINARY TRACT INFECTION [None]
